FAERS Safety Report 7171312-6 (Version None)
Quarter: 2010Q4

REPORT INFORMATION
  Report Type: 
  Country: None (occurrence: None)
  Receive Date: 20101123
  Receipt Date: 20100728
  Transmission Date: 20110411
  Serious: No
  Sender: FDA-Public Use
  Company Number: 016159

PATIENT
  Sex: Female

DRUGS (6)
  1. CIMZIA [Suspect]
     Indication: CROHN'S DISEASE
     Dosage: (400 MG 1X/MONTH SUBCUTANEOUS)
     Route: 058
     Dates: start: 20080101
  2. ATROPA BELLADONNA [Concomitant]
  3. ASACOL [Concomitant]
  4. NAPROSYN [Concomitant]
  5. LOMOTIL /00034001/ [Concomitant]
  6. PREDNISONE [Concomitant]

REACTIONS (4)
  - MIGRAINE [None]
  - NAUSEA [None]
  - PRESYNCOPE [None]
  - PYREXIA [None]
